FAERS Safety Report 5217160-5 (Version None)
Quarter: 2007Q1

REPORT INFORMATION
  Report Type: 
  Country: None (occurrence: None)
  Receive Date: 20070123
  Receipt Date: 20070123
  Transmission Date: 20070707
  Serious: Yes (Other)
  Sender: FDA-Public Use
  Company Number: None

PATIENT

DRUGS (2)
  1. DOXYCYCLINE [Suspect]
     Indication: ACNE
     Dosage: ONE PO BID   6 MOS - YEAR
     Route: 048
  2. DOXYCYCLINE [Suspect]
     Indication: ACNE CYSTIC
     Dosage: ONE PO BID   6 MOS - YEAR
     Route: 048

REACTIONS (2)
  - CONDITION AGGRAVATED [None]
  - DRUG EFFECT DECREASED [None]
